FAERS Safety Report 23144480 (Version 2)
Quarter: 2023Q4

REPORT INFORMATION
  Report Type: Spontaneous
  Country: RU (occurrence: RU)
  Receive Date: 20231103
  Receipt Date: 20231109
  Transmission Date: 20240110
  Serious: Yes (Other)
  Sender: FDA-Public Use
  Company Number: RU-JNJFOC-20231075159

PATIENT
  Weight: 80 kg

DRUGS (5)
  1. STELARA [Suspect]
     Active Substance: USTEKINUMAB
     Indication: Product used for unknown indication
     Route: 040
     Dates: start: 20230324
  2. STELARA [Suspect]
     Active Substance: USTEKINUMAB
     Route: 058
  3. AZATHIOPRINE [Suspect]
     Active Substance: AZATHIOPRINE
     Indication: Product used for unknown indication
     Route: 065
     Dates: start: 202112
  4. MESALAMINE [Concomitant]
     Active Substance: MESALAMINE
     Route: 065
  5. MESALAMINE [Concomitant]
     Active Substance: MESALAMINE
     Route: 065

REACTIONS (5)
  - Crohn^s disease [Unknown]
  - Anorectal stenosis [Unknown]
  - Cytomegalovirus infection [Unknown]
  - Herpes simplex [Unknown]
  - Epstein-Barr virus infection [Unknown]

NARRATIVE: CASE EVENT DATE: 20230523
